FAERS Safety Report 7750902 (Version 4)
Quarter: 2013Q4

REPORT INFORMATION
  Report Type: Spontaneous
  Country: US (occurrence: US)
  Receive Date: 20110106
  Receipt Date: 20131127
  Transmission Date: 20140711
  Serious: Yes (Hospitalization, Other)
  Sender: FDA-Public Use
  Company Number: US-US-EMD SERONO, INC.-7006570

PATIENT
  Age: 50 Year
  Sex: Female
  Weight: 83 kg

DRUGS (5)
  1. REBIF [Suspect]
     Indication: MULTIPLE SCLEROSIS
     Route: 058
     Dates: start: 20081222, end: 2011
  2. LASIX [Concomitant]
     Indication: PROPHYLAXIS
  3. POTASSIUM [Concomitant]
     Indication: PROPHYLAXIS
  4. BABY ASPIRIN [Concomitant]
     Indication: PROPHYLAXIS
  5. LABETALOL [Concomitant]
     Indication: SUPRAVENTRICULAR TACHYCARDIA

REACTIONS (13)
  - Coronary artery occlusion [Recovering/Resolving]
  - Chest pain [Not Recovered/Not Resolved]
  - Blood cholesterol increased [Unknown]
  - Haemoglobin decreased [Unknown]
  - Heart rate decreased [Unknown]
  - Visual impairment [Unknown]
  - Suicidal ideation [Not Recovered/Not Resolved]
  - Depression [Not Recovered/Not Resolved]
  - Nasopharyngitis [Unknown]
  - Confusional state [Unknown]
  - Pain in extremity [Unknown]
  - Muscle spasms [Unknown]
  - Hypothyroidism [Unknown]
